FAERS Safety Report 19210243 (Version 1)
Quarter: 2021Q2

REPORT INFORMATION
  Report Type: Spontaneous
  Country: US (occurrence: US)
  Receive Date: 20210504
  Receipt Date: 20210504
  Transmission Date: 20210717
  Serious: No
  Sender: FDA-Public Use
  Company Number: US-ALVOGEN-2021-ALVOGEN-116546

PATIENT
  Sex: Female

DRUGS (1)
  1. MACROBID [Suspect]
     Active Substance: NITROFURANTOIN\NITROFURANTOIN MONOHYDRATE
     Indication: URINARY TRACT INFECTION

REACTIONS (4)
  - Pyrexia [Recovered/Resolved]
  - Pain [Recovered/Resolved]
  - Abdominal pain [Unknown]
  - Drug hypersensitivity [Recovered/Resolved]
